FAERS Safety Report 14845531 (Version 1)
Quarter: 2018Q2

REPORT INFORMATION
  Report Type: Spontaneous
  Country: US (occurrence: US)
  Receive Date: 20180504
  Receipt Date: 20180504
  Transmission Date: 20180711
  Serious: No
  Sender: FDA-Public Use
  Company Number: US-PFIZER INC-2018182001

PATIENT
  Age: 56 Year
  Sex: Female
  Weight: 81.18 kg

DRUGS (1)
  1. DOCETAXEL. [Suspect]
     Active Substance: DOCETAXEL
     Indication: BREAST CANCER
     Dosage: UNK
     Dates: start: 200408, end: 2005

REACTIONS (2)
  - Alopecia [Unknown]
  - Madarosis [Unknown]

NARRATIVE: CASE EVENT DATE: 2004
